FAERS Safety Report 21904415 (Version 1)
Quarter: 2023Q1

REPORT INFORMATION
  Report Type: Report from Study
  Country: US (occurrence: US)
  Receive Date: 20230124
  Receipt Date: 20230124
  Transmission Date: 20230417
  Serious: Yes (Other)
  Sender: FDA-Public Use
  Company Number: US-ABBVIE-4280327

PATIENT
  Age: 46 Year
  Sex: Male

DRUGS (1)
  1. HUMIRA [Suspect]
     Active Substance: ADALIMUMAB
     Indication: Psoriasis
     Route: 058
     Dates: start: 20140122

REACTIONS (4)
  - Urethral perforation [Recovered/Resolved]
  - Psoriasis [Recovered/Resolved]
  - Urinary tract infection [Recovered/Resolved]
  - Urethral injury [Recovered/Resolved]

NARRATIVE: CASE EVENT DATE: 20190121
